FAERS Safety Report 15010944 (Version 1)
Quarter: 2018Q2

REPORT INFORMATION
  Report Type: Spontaneous
  Country: US (occurrence: US)
  Receive Date: 20180614
  Receipt Date: 20180614
  Transmission Date: 20180711
  Serious: No
  Sender: FDA-Public Use
  Company Number: US-PFIZER INC-2018241559

PATIENT
  Age: 63 Year
  Sex: Female
  Weight: 59.87 kg

DRUGS (2)
  1. EFFEXOR XR [Suspect]
     Active Substance: VENLAFAXINE HYDROCHLORIDE
     Dosage: 150 MG, CAPSULE
  2. DALIUM [Concomitant]
     Indication: MUSCLE SPASMS
     Dosage: 5 MG, 2X/DAY WITH WATER

REACTIONS (10)
  - Balance disorder [Unknown]
  - Depression [Unknown]
  - Drug ineffective [Unknown]
  - Gait disturbance [Unknown]
  - Condition aggravated [Unknown]
  - Gingival bleeding [Unknown]
  - Headache [Unknown]
  - Dizziness [Unknown]
  - Epistaxis [Recovered/Resolved]
  - Intentional product misuse [Unknown]
